FAERS Safety Report 18673455 (Version 2)
Quarter: 2021Q1

REPORT INFORMATION
  Report Type: Spontaneous
  Country: US (occurrence: US)
  Receive Date: 20201228
  Receipt Date: 20210107
  Transmission Date: 20210419
  Serious: Yes (Life-Threatening, Hospitalization)
  Sender: FDA-Public Use
  Company Number: US-ELI_LILLY_AND_COMPANY-US202012011862

PATIENT
  Age: 83 Year
  Sex: Male

DRUGS (1)
  1. BAMLANIVIMAB. [Suspect]
     Active Substance: BAMLANIVIMAB
     Indication: COVID-19
     Dosage: UNK, SINGLE
     Route: 065
     Dates: start: 20201222, end: 20201222

REACTIONS (10)
  - Chills [Unknown]
  - Vomiting [Unknown]
  - Urinary tract infection bacterial [Unknown]
  - Aspiration [Unknown]
  - Hypertension [Unknown]
  - Atrial fibrillation [Unknown]
  - Tachycardia [Unknown]
  - Hypotension [Unknown]
  - Infusion related reaction [Unknown]
  - Bacteraemia [Unknown]

NARRATIVE: CASE EVENT DATE: 20201222
